FAERS Safety Report 7480289-5 (Version None)
Quarter: 2011Q2

REPORT INFORMATION
  Report Type: 
  Country: None (occurrence: None)
  Receive Date: 20110502
  Receipt Date: 20110502
  Transmission Date: 20111010
  Serious: Yes (Disabling, Other)
  Sender: FDA-Public Use
  Company Number: None

PATIENT
  Sex: Female
  Weight: 86.1834 kg

DRUGS (1)
  1. LEVAQUIN [Suspect]
     Indication: BRONCHOPNEUMONIA
     Dosage: 500MG 1 A DAY FOR 7 DAYS
     Dates: start: 20101103

REACTIONS (7)
  - ACTIVITIES OF DAILY LIVING IMPAIRED [None]
  - TENDON DISORDER [None]
  - ROTATOR CUFF SYNDROME [None]
  - MOVEMENT DISORDER [None]
  - NO THERAPEUTIC RESPONSE [None]
  - MUSCLE DISORDER [None]
  - ARTHROPATHY [None]
